FAERS Safety Report 17960869 (Version 1)
Quarter: 2020Q2

REPORT INFORMATION
  Report Type: Spontaneous
  Country: US (occurrence: US)
  Receive Date: 20200629
  Receipt Date: 20200629
  Transmission Date: 20200714
  Serious: Yes (Other)
  Sender: FDA-Public Use
  Company Number: None

PATIENT
  Age: 77 Year
  Sex: Female
  Weight: 60.5 kg

DRUGS (19)
  1. AMLODIPINE [Concomitant]
     Active Substance: AMLODIPINE BESYLATE
     Dates: start: 20200621, end: 20200628
  2. CEFUROXIME. [Concomitant]
     Active Substance: CEFUROXIME
     Dates: start: 20200627, end: 20200628
  3. CARVEDILOL. [Concomitant]
     Active Substance: CARVEDILOL
     Dates: start: 20200621, end: 20200628
  4. ENOXAPARIN [Concomitant]
     Active Substance: ENOXAPARIN
     Dates: start: 20200621, end: 20200628
  5. HALDOL [Concomitant]
     Active Substance: HALOPERIDOL
     Dates: start: 20200623, end: 20200624
  6. AZITHROMYCIN ANHYDROUS. [Concomitant]
     Active Substance: AZITHROMYCIN ANHYDROUS
     Dates: start: 20200620, end: 20200624
  7. CEFTRIAXONE. [Concomitant]
     Active Substance: CEFTRIAXONE
     Dates: start: 20200620, end: 20200626
  8. POTASSIUM CHLORIDE. [Concomitant]
     Active Substance: POTASSIUM CHLORIDE
     Dates: start: 20200622, end: 20200622
  9. DEXAMETHASONE. [Concomitant]
     Active Substance: DEXAMETHASONE
     Dates: start: 20200621, end: 20200626
  10. EFFER-K (POTASSIUM BICARB - CITRIC ACID) [Concomitant]
     Dates: start: 20200625, end: 20200628
  11. REMDESIVIR. [Suspect]
     Active Substance: REMDESIVIR
     Indication: COVID-19
     Route: 040
  12. CLOPIDOGREL [Concomitant]
     Active Substance: CLOPIDOGREL BISULFATE
     Dates: start: 20200621, end: 20200628
  13. ULTIMATE FLORA PROBIOTIC [Concomitant]
     Active Substance: PROBIOTICS NOS
     Dates: start: 20200621, end: 20200628
  14. PRAVASTATIN. [Concomitant]
     Active Substance: PRAVASTATIN
     Dates: start: 20200620, end: 20200628
  15. ACETAMINOPHEN. [Concomitant]
     Active Substance: ACETAMINOPHEN
     Dates: start: 20200624, end: 20200626
  16. MAGNESIUM IV [Concomitant]
     Dates: start: 20200626, end: 20200626
  17. HUMALOG [Concomitant]
     Active Substance: INSULIN LISPRO
     Dates: start: 20200621, end: 20200627
  18. LISINOPRIL. [Concomitant]
     Active Substance: LISINOPRIL
     Dates: start: 20200621, end: 20200628
  19. HYDRALAZINE [Concomitant]
     Active Substance: HYDRALAZINE HYDROCHLORIDE
     Dates: start: 20200623, end: 20200626

REACTIONS (3)
  - Blood pressure systolic increased [None]
  - Blood pressure inadequately controlled [None]
  - Hypertension [None]

NARRATIVE: CASE EVENT DATE: 20200625
